FAERS Safety Report 7627545-5 (Version None)
Quarter: 2011Q3

REPORT INFORMATION
  Report Type: 
  Country: None (occurrence: None)
  Receive Date: 20110721
  Receipt Date: 20110707
  Transmission Date: 20111222
  Serious: Yes (Hospitalization)
  Sender: FDA-Public Use
  Company Number: US-TYCO HEALTHCARE/MALLINCKRODT-T201101356

PATIENT
  Age: 41 Year
  Sex: Male

DRUGS (4)
  1. EXALGO [Suspect]
     Dosage: UNK
  2. INSULIN [Concomitant]
     Dosage: UNK
  3. OPANA ER [Suspect]
  4. GLIPIZIDE [Suspect]
     Dosage: UNK

REACTIONS (5)
  - LETHARGY [None]
  - SUICIDE ATTEMPT [None]
  - THINKING ABNORMAL [None]
  - IMPULSIVE BEHAVIOUR [None]
  - SOMNOLENCE [None]
